FAERS Safety Report 6542909-9 (Version None)
Quarter: 2010Q1

REPORT INFORMATION
  Report Type: 
  Country: None (occurrence: None)
  Receive Date: 20100120
  Receipt Date: 20100113
  Transmission Date: 20100710
  Serious: Yes (Other)
  Sender: FDA-Public Use
  Company Number: US-PERRIGO-10US006324

PATIENT
  Sex: Female
  Weight: 5.896 kg

DRUGS (2)
  1. SIMETHICONE DROPS 66.667 MG/ML 882 [Suspect]
     Indication: FLATULENCE
     Dosage: 0.3 ML, IN EACH BOTTLE 3-4 TIMES DAILY
     Route: 048
     Dates: start: 20090901, end: 20091101
  2. SIMETHICONE DROPS 66.667 MG/ML 882 [Suspect]
     Dosage: 0.3 ML, IN EACH BOTTLE FOR APPROXIMATELY 10 BOTTLES
     Route: 048
     Dates: start: 20100111, end: 20100113

REACTIONS (2)
  - CONVULSION [None]
  - HYPERSENSITIVITY [None]
